FAERS Safety Report 24678185 (Version 1)
Quarter: 2024Q4

REPORT INFORMATION
  Report Type: Spontaneous
  Country: US (occurrence: US)
  Receive Date: 20241129
  Receipt Date: 20241129
  Transmission Date: 20250115
  Serious: No
  Sender: DR REDDYS
  Company Number: US-DRL-USA-SPO/USA/24/0017507

PATIENT
  Age: 13 Year
  Sex: Female

DRUGS (2)
  1. ZENATANE [Suspect]
     Active Substance: ISOTRETINOIN
     Indication: Product used for unknown indication
     Dosage: ONE TO BE TAKEN EVERY OTHER DAY
     Route: 065
  2. ZENATANE [Suspect]
     Active Substance: ISOTRETINOIN
     Dosage: ONE TO BE TAKEN EVERY OTHER DAY
     Route: 065
     Dates: start: 20240927

REACTIONS (1)
  - Therapy change [Unknown]

NARRATIVE: CASE EVENT DATE: 20241121
